FAERS Safety Report 13408235 (Version 1)
Quarter: 2017Q2

REPORT INFORMATION
  Report Type: Spontaneous
  Country: RU (occurrence: RU)
  Receive Date: 20170406
  Receipt Date: 20170406
  Transmission Date: 20170830
  Serious: Yes (Life-Threatening)
  Sender: FDA-Public Use
  Company Number: RU-ROCHE-1916936

PATIENT
  Age: 24 Year
  Sex: Female

DRUGS (2)
  1. TOCILIZUMAB [Concomitant]
     Active Substance: TOCILIZUMAB
     Route: 042
     Dates: start: 20140510
  2. MABTHERA [Suspect]
     Active Substance: RITUXIMAB
     Indication: RHEUMATOID ARTHRITIS
     Route: 065
     Dates: start: 200906, end: 2009

REACTIONS (1)
  - Asphyxia [Recovered/Resolved]

NARRATIVE: CASE EVENT DATE: 200906
